FAERS Safety Report 5151898-3 (Version None)
Quarter: 2006Q4

REPORT INFORMATION
  Report Type: 
  Country: None (occurrence: None)
  Receive Date: 20061109
  Receipt Date: 20061030
  Transmission Date: 20070319
  Serious: Yes (Hospitalization)
  Sender: FDA-Public Use
  Company Number: 863#3#2006-00016

PATIENT
  Age: 96 Year
  Sex: Female

DRUGS (6)
  1. IDROLAX (MACROGOL) [Suspect]
     Dosage: 10 G ORAL
     Route: 048
     Dates: end: 20051104
  2. COLCHICINE (COLCHICINE) [Suspect]
     Dosage: ORAL
     Route: 048
     Dates: end: 20051104
  3. ALIMEMAZINE TARTRATE (ALIMEMAZINE TARTRATE) [Concomitant]
  4. AMIODARONE HCL [Concomitant]
  5. ACETAMINOPHEN [Concomitant]
  6. ACETYLSALICYLATE LYSINE (ACETYLSALICYLATE LYSINE) [Concomitant]

REACTIONS (8)
  - BLOOD CREATININE INCREASED [None]
  - BLOOD PRESSURE DIASTOLIC DECREASED [None]
  - DEHYDRATION [None]
  - DIARRHOEA [None]
  - GENERAL PHYSICAL HEALTH DETERIORATION [None]
  - HYPOKALAEMIA [None]
  - HYPONATRAEMIA [None]
  - WEIGHT DECREASED [None]
